FAERS Safety Report 5098132-0 (Version None)
Quarter: 2006Q3

REPORT INFORMATION
  Report Type: 
  Country: None (occurrence: None)
  Receive Date: 20060906
  Receipt Date: 20060421
  Transmission Date: 20061208
  Serious: Yes (Other)
  Sender: FDA-Public Use
  Company Number: US-GLAXOSMITHKLINE-A0602835A

PATIENT
  Age: 54 Year
  Sex: Female

DRUGS (10)
  1. REQUIP [Suspect]
     Indication: RESTLESS LEGS SYNDROME
     Route: 048
     Dates: start: 20060223
  2. LYRICA [Concomitant]
     Dosage: 75MG SEE DOSAGE TEXT
     Route: 048
  3. SUBOXONE [Concomitant]
     Dosage: 2MG SEE DOSAGE TEXT
     Route: 060
  4. EFFEXOR [Concomitant]
  5. BUSPAR [Concomitant]
     Dosage: 15U TWICE PER DAY
  6. NORVASC [Concomitant]
     Dosage: 5MG PER DAY
  7. TOPROL-XL [Concomitant]
     Dosage: 150MG PER DAY
  8. PREVACID [Concomitant]
     Dosage: 30MG PER DAY
  9. PLAVIX [Concomitant]
     Dosage: 75U PER DAY
  10. SEROQUEL [Concomitant]
     Dosage: 25U AT NIGHT

REACTIONS (2)
  - CONFUSIONAL STATE [None]
  - SUDDEN ONSET OF SLEEP [None]
